FAERS Safety Report 12181572 (Version 2)
Quarter: 2016Q4

REPORT INFORMATION
  Report Type: Spontaneous
  Country: GR (occurrence: GR)
  Receive Date: 20160315
  Receipt Date: 20161230
  Transmission Date: 20170207
  Serious: Yes (Other)
  Sender: FDA-Public Use
  Company Number: GR-FERRINGPH-2016FE01133

PATIENT

DRUGS (3)
  1. ZOMACTON [Suspect]
     Active Substance: SOMATROPIN
     Indication: GROWTH HORMONE DEFICIENCY
     Dosage: 0.5 MG, DAILY
     Route: 058
     Dates: start: 20160107, end: 20160224
  2. HYDROCORTISONE. [Concomitant]
     Active Substance: HYDROCORTISONE
     Indication: HYPOPITUITARISM
     Dosage: UNK
     Route: 048
     Dates: start: 201507
  3. T4 [Concomitant]
     Active Substance: LEVOTHYROXINE
     Indication: HYPOPITUITARISM
     Dosage: 25 ?G, DAILY
     Route: 048
     Dates: start: 201507

REACTIONS (1)
  - Craniopharyngioma [Recovering/Resolving]

NARRATIVE: CASE EVENT DATE: 20160224
